FAERS Safety Report 15352791 (Version 1)
Quarter: 2018Q3

REPORT INFORMATION
  Report Type: Spontaneous
  Country: JP (occurrence: JP)
  Receive Date: 20180905
  Receipt Date: 20180905
  Transmission Date: 20181010
  Serious: Yes (Hospitalization)
  Sender: FDA-Public Use
  Company Number: JP-EISAI MEDICAL RESEARCH-EC-2018-044612

PATIENT
  Age: 69 Year
  Sex: Female

DRUGS (2)
  1. ASPIRIN. [Concomitant]
     Active Substance: ASPIRIN
     Indication: CAROTID ARTERY STENOSIS
     Dosage: UNKNOWN
     Route: 048
  2. PARIET [Suspect]
     Active Substance: RABEPRAZOLE SODIUM
     Indication: CAROTID ARTERY STENOSIS
     Dosage: UNKNOWN
     Route: 048

REACTIONS (1)
  - Tubulointerstitial nephritis [Recovered/Resolved]
